FAERS Safety Report 14978194 (Version 1)
Quarter: 2018Q2

REPORT INFORMATION
  Report Type: Spontaneous
  Country: US (occurrence: US)
  Receive Date: 20180515
  Receipt Date: 20180515
  Transmission Date: 20180711
  Serious: Yes (Disabling, Other)
  Sender: FDA-Public Use
  Company Number: None

PATIENT
  Age: 57 Year
  Sex: Female
  Weight: 58.5 kg

DRUGS (5)
  1. TIZANADINE [Concomitant]
     Active Substance: TIZANIDINE
  2. ZONEGRAN [Concomitant]
     Active Substance: ZONISAMIDE
  3. CIPRO HC [Suspect]
     Active Substance: CIPROFLOXACIN HYDROCHLORIDE\HYDROCORTISONE
     Indication: EAR INFECTION
     Route: 001
     Dates: start: 20180304, end: 20180308
  4. NORCO [Concomitant]
     Active Substance: ACETAMINOPHEN\HYDROCODONE BITARTRATE
  5. PRADAXA [Concomitant]
     Active Substance: DABIGATRAN ETEXILATE MESYLATE

REACTIONS (4)
  - Labyrinthitis [None]
  - Ear haemorrhage [None]
  - Deafness unilateral [None]
  - Balance disorder [None]

NARRATIVE: CASE EVENT DATE: 20180304
